FAERS Safety Report 6357770-5 (Version None)
Quarter: 2009Q3

REPORT INFORMATION
  Report Type: 
  Country: None (occurrence: None)
  Receive Date: 20090911
  Receipt Date: 20090804
  Transmission Date: 20100115
  Serious: Yes (Hospitalization, Other)
  Sender: FDA-Public Use
  Company Number: 09GB001201

PATIENT
  Age: 57 Year
  Sex: Male

DRUGS (2)
  1. PAROXETINE HCL [Suspect]
     Indication: ANXIETY
     Dosage: 30 MG, 1/MONTH
  2. CLOZARIL [Suspect]
     Indication: SCHIZOPHRENIA
     Dosage: 600 MG, QD, ORAL
     Route: 048
     Dates: start: 19900905, end: 20070316

REACTIONS (6)
  - DIZZINESS [None]
  - GENERAL PHYSICAL HEALTH DETERIORATION [None]
  - HAEMORRHOID INFECTION [None]
  - HYPOTENSION [None]
  - PLATELET COUNT INCREASED [None]
  - SCROTAL GANGRENE [None]
